FAERS Safety Report 13855292 (Version 1)
Quarter: 2017Q3

REPORT INFORMATION
  Report Type: Spontaneous
  Country: US (occurrence: AR)
  Receive Date: 20170810
  Receipt Date: 20170810
  Transmission Date: 20171127
  Serious: Yes (Hospitalization, Other)
  Sender: FDA-Public Use
  Company Number: US-BRISTOL-MYERS SQUIBB COMPANY-BMS-2017-068467

PATIENT
  Age: 77 Year
  Sex: Female

DRUGS (2)
  1. REMODULIN [Suspect]
     Active Substance: TREPROSTINIL
     Indication: PULMONARY ARTERIAL HYPERTENSION
     Dosage: 4.8 MG, UNK
     Route: 058
     Dates: start: 20160601
  2. COUMADIN [Suspect]
     Active Substance: WARFARIN SODIUM
     Indication: PRODUCT USED FOR UNKNOWN INDICATION
     Dosage: 4.8 MG
     Route: 065
     Dates: start: 20160601

REACTIONS (3)
  - Cardiac failure congestive [Recovered/Resolved]
  - Gastrointestinal haemorrhage [Unknown]
  - Transfusion [Unknown]

NARRATIVE: CASE EVENT DATE: 20170624
